FAERS Safety Report 7731479-5 (Version None)
Quarter: 2011Q3

REPORT INFORMATION
  Report Type: 
  Country: None (occurrence: None)
  Receive Date: 20110906
  Receipt Date: 20110824
  Transmission Date: 20111222
  Serious: Yes (Death)
  Sender: FDA-Public Use
  Company Number: US-TYCO HEALTHCARE/MALLINCKRODT-T201101637

PATIENT
  Age: 94 Year
  Sex: Male

DRUGS (2)
  1. ULTRA-TECHNEKOW [Suspect]
     Indication: GASTROINTESTINAL SCAN
     Dosage: UNK
     Dates: start: 20110814, end: 20110814
  2. ULTRATAG [Suspect]
     Indication: GASTROINTESTINAL SCAN
     Dosage: UNK
     Dates: start: 20110814, end: 20110814

REACTIONS (2)
  - DEATH [None]
  - DRUG INEFFECTIVE [None]
